FAERS Safety Report 8619421-6 (Version None)
Quarter: 2012Q3

REPORT INFORMATION
  Report Type: 
  Country: None (occurrence: None)
  Receive Date: 20120824
  Receipt Date: 20120820
  Transmission Date: 20120928
  Serious: Yes (Hospitalization, Other)
  Sender: FDA-Public Use
  Company Number: BR-PFIZER INC-2012203521

PATIENT
  Age: 68 Year
  Sex: Female
  Weight: 70 kg

DRUGS (11)
  1. CRESTOR [Concomitant]
     Indication: BLOOD CHOLESTEROL INCREASED
     Dosage: UNK
  2. LIPITOR [Concomitant]
     Indication: BLOOD CHOLESTEROL INCREASED
     Dosage: 20 MG, UNK
  3. NEURONTIN [Concomitant]
     Indication: FIBROMYALGIA
     Dosage: UNK
  4. OMEPRAZOLE [Concomitant]
     Indication: PROPHYLAXIS
     Dosage: ONE TABLET ONCE DAILY
  5. CIBRATO [Concomitant]
     Indication: BLOOD CHOLESTEROL INCREASED
     Dosage: UNK
  6. PAMELOR [Concomitant]
     Indication: SEDATIVE THERAPY
     Dosage: UNK
  7. ALPRAZOLAM [Suspect]
     Dosage: 1 MG, 2X/DAY
     Route: 048
     Dates: start: 19970101
  8. DEPURA [Concomitant]
     Indication: VITAMIN D DEFICIENCY
     Dosage: UNK
  9. ZETIA [Concomitant]
     Indication: BLOOD CHOLESTEROL INCREASED
     Dosage: UNK
  10. DAFLON [Concomitant]
     Indication: CARDIOVASCULAR DISORDER
     Dosage: 500 MG, UNK
  11. LYRICA [Concomitant]
     Indication: FIBROMYALGIA
     Dosage: 150 MG, 2X/DAY
     Dates: start: 20070101

REACTIONS (6)
  - PAIN IN EXTREMITY [None]
  - HYPOTHYROIDISM [None]
  - HYPERTENSION [None]
  - HEADACHE [None]
  - ISCHAEMIA [None]
  - BACK PAIN [None]
